FAERS Safety Report 6506353-2 (Version None)
Quarter: 2009Q4

REPORT INFORMATION
  Report Type: 
  Country: None (occurrence: None)
  Receive Date: 20091218
  Receipt Date: 20091209
  Transmission Date: 20100525
  Serious: Yes (Hospitalization, Other)
  Sender: FDA-Public Use
  Company Number: BR-ABBOTT-07P-020-0425117-00

PATIENT
  Sex: Female
  Weight: 61 kg

DRUGS (5)
  1. HUMIRA [Suspect]
     Indication: RHEUMATOID ARTHRITIS
     Route: 058
     Dates: start: 20070701, end: 20071001
  2. METHOTREXATE [Concomitant]
     Indication: RHEUMATOID ARTHRITIS
     Dates: start: 20070101
  3. CORTICOSTEROIDS [Concomitant]
     Indication: RHEUMATOID ARTHRITIS
     Dates: end: 20071001
  4. CORTISONE [Concomitant]
     Indication: ARTHRALGIA
     Route: 048
     Dates: start: 19940101
  5. CALCIUM CARBONATE W/COLECALCIFEROL [Concomitant]
     Indication: OSTEOPOROSIS
     Route: 048

REACTIONS (4)
  - CALCULUS URETHRAL [None]
  - DRUG INEFFECTIVE [None]
  - PAIN [None]
  - PNEUMONIA [None]
